FAERS Safety Report 14022916 (Version 1)
Quarter: 2017Q3

REPORT INFORMATION
  Report Type: Spontaneous
  Country: US (occurrence: US)
  Receive Date: 20170928
  Receipt Date: 20170928
  Transmission Date: 20171128
  Serious: Yes (Hospitalization)
  Sender: FDA-Public Use
  Company Number: US-SA-2016SA190849

PATIENT
  Age: 50 Year
  Sex: Female
  Weight: 70.3 kg

DRUGS (1)
  1. AUBAGIO [Suspect]
     Active Substance: TERIFLUNOMIDE
     Indication: MULTIPLE SCLEROSIS
     Route: 048
     Dates: start: 20160906

REACTIONS (11)
  - Anxiety [Unknown]
  - Vision blurred [Unknown]
  - Drug ineffective [Unknown]
  - Panic attack [Unknown]
  - Gait disturbance [Unknown]
  - Multiple sclerosis relapse [Unknown]
  - Muscular weakness [Unknown]
  - Asthenia [Unknown]
  - Headache [Unknown]
  - Mobility decreased [Unknown]
  - Urinary incontinence [Unknown]

NARRATIVE: CASE EVENT DATE: 20161113
